FAERS Safety Report 18112414 (Version 2)
Quarter: 2020Q3

REPORT INFORMATION
  Report Type: Report from Study
  Country: JP (occurrence: JP)
  Receive Date: 20200805
  Receipt Date: 20200816
  Transmission Date: 20201103
  Serious: Yes (Other)
  Sender: FDA-Public Use
  Company Number: NVSJ2020JP007496

PATIENT
  Age: 74 Year
  Sex: Male
  Weight: 34.5 kg

DRUGS (2)
  1. IMATINIB TAB [Suspect]
     Active Substance: IMATINIB
     Indication: GASTROINTESTINAL STROMAL TUMOUR
     Dosage: 300 MG, UNK
     Route: 048
     Dates: start: 20120426, end: 20141015
  2. PARIET [Concomitant]
     Active Substance: RABEPRAZOLE SODIUM
     Indication: PRODUCT USED FOR UNKNOWN INDICATION
     Dosage: 10 MG, QD
     Route: 048
     Dates: start: 20120214, end: 20141127

REACTIONS (2)
  - Second primary malignancy [Recovered/Resolved]
  - Gastric cancer [Recovered/Resolved]

NARRATIVE: CASE EVENT DATE: 20141015
